FAERS Safety Report 7365820-2 (Version None)
Quarter: 2011Q1

REPORT INFORMATION
  Report Type: 
  Country: None (occurrence: None)
  Receive Date: 20110322
  Receipt Date: 20110308
  Transmission Date: 20110831
  Serious: Yes (Hospitalization, Other)
  Sender: FDA-Public Use
  Company Number: JP-JNJFOC-20110104855

PATIENT
  Sex: Female

DRUGS (6)
  1. CRAVIT [Suspect]
     Indication: PHARYNGITIS
     Route: 048
  2. DASEN [Concomitant]
     Indication: UPPER RESPIRATORY TRACT INFLAMMATION
     Route: 048
  3. MUCODYNE [Concomitant]
     Indication: UPPER RESPIRATORY TRACT INFLAMMATION
     Route: 048
  4. FLAVERIC [Concomitant]
     Indication: UPPER RESPIRATORY TRACT INFLAMMATION
     Route: 048
  5. CRAVIT [Suspect]
     Indication: UPPER RESPIRATORY TRACT INFECTION
     Route: 048
  6. SOLANTAL [Concomitant]
     Indication: UPPER RESPIRATORY TRACT INFLAMMATION
     Route: 048

REACTIONS (2)
  - POLYMYOSITIS [None]
  - RHABDOMYOLYSIS [None]
